FAERS Safety Report 6338126-8 (Version None)
Quarter: 2009Q3

REPORT INFORMATION
  Report Type: 
  Country: None (occurrence: None)
  Receive Date: 20090902
  Receipt Date: 20090821
  Transmission Date: 20100115
  Serious: Yes (Death, Other)
  Sender: FDA-Public Use
  Company Number: JP-PFIZER INC-2009259842

PATIENT
  Age: 78 Year

DRUGS (9)
  1. LINEZOLID [Suspect]
     Indication: PNEUMONIA STAPHYLOCOCCAL
     Dosage: 600 MG, 2X/DAY
     Route: 042
     Dates: start: 20070207, end: 20070219
  2. TARGOCID [Concomitant]
     Route: 042
     Dates: start: 20070101, end: 20070101
  3. PROPOFOL [Concomitant]
     Dosage: UNK
     Route: 042
     Dates: start: 20070206, end: 20070220
  4. BISOLVON [Concomitant]
     Dosage: UNK
     Route: 042
     Dates: start: 20070208, end: 20070220
  5. FUTHAN [Concomitant]
     Dosage: UNK
     Route: 042
     Dates: start: 20070210, end: 20070218
  6. ALBUMIN HUMAN [Concomitant]
     Dosage: UNK
     Route: 042
     Dates: start: 20070213, end: 20070215
  7. LASIX [Concomitant]
     Dosage: UNK
     Route: 042
     Dates: start: 20070213, end: 20070215
  8. MEROPEN [Concomitant]
     Indication: PNEUMONIA
     Route: 042
     Dates: end: 20070214
  9. ELASPOL [Concomitant]
     Dosage: UNK
     Route: 042
     Dates: start: 20070208, end: 20070219

REACTIONS (3)
  - DISSEMINATED INTRAVASCULAR COAGULATION [None]
  - HYPERBILIRUBINAEMIA [None]
  - PLATELET COUNT DECREASED [None]
